FAERS Safety Report 5246518-3 (Version None)
Quarter: 2007Q1

REPORT INFORMATION
  Report Type: 
  Country: None (occurrence: None)
  Receive Date: 20070226
  Receipt Date: 20060420
  Transmission Date: 20070707
  Serious: No
  Sender: FDA-Public Use
  Company Number: 190

PATIENT
  Age: 73 Year
  Sex: Female

DRUGS (2)
  1. ALKERAN [Suspect]
     Indication: DRUG USE FOR UNKNOWN INDICATION
  2. REVLIMID [Interacting]
     Dosage: 10MG PER DAY
     Route: 048
     Dates: start: 20060227

REACTIONS (3)
  - ASTHENIA [None]
  - DRUG INTERACTION [None]
  - FATIGUE [None]
